FAERS Safety Report 5094535-9 (Version None)
Quarter: 2006Q3

REPORT INFORMATION
  Report Type: 
  Country: None (occurrence: None)
  Receive Date: 20060830
  Receipt Date: 20060817
  Transmission Date: 20061208
  Serious: Yes (Other)
  Sender: FDA-Public Use
  Company Number: 2006102578

PATIENT
  Age: 53 Year
  Sex: Female
  Weight: 96.1626 kg

DRUGS (8)
  1. CHANTIX [Suspect]
     Indication: SMOKING CESSATION THERAPY
     Dosage: 0.5 MG (0.5 MG, 1 IN 1 D)
     Dates: start: 20060816
  2. HUMULIN R [Concomitant]
  3. LANTUS [Concomitant]
  4. MONTELUKAST (MONTELUKAST) [Concomitant]
  5. STELAZINE [Concomitant]
  6. ALTACE [Concomitant]
  7. INTERFERON BETA (INTERFERON BETA) [Concomitant]
  8. NEXIUM [Concomitant]

REACTIONS (6)
  - ASTHENIA [None]
  - FALL [None]
  - FEELING ABNORMAL [None]
  - MOVEMENT DISORDER [None]
  - TOOTH EXTRACTION [None]
  - WALKING AID USER [None]
